FAERS Safety Report 8345213-1 (Version None)
Quarter: 2012Q2

REPORT INFORMATION
  Report Type: 
  Country: None (occurrence: None)
  Receive Date: 20120508
  Receipt Date: 20120503
  Transmission Date: 20120825
  Serious: Yes (Death)
  Sender: FDA-Public Use
  Company Number: BR-ACTELION PHARMACEUTICALS LTD-A-CH2012-61794

PATIENT
  Sex: Male
  Weight: 19 kg

DRUGS (5)
  1. OXYGEN [Concomitant]
  2. VENTAVIS [Suspect]
     Indication: PULMONARY ARTERIAL HYPERTENSION
     Dosage: UNK
     Route: 055
  3. TRACLEER [Suspect]
     Dosage: 31.25 MG, BID
     Route: 048
     Dates: start: 20100501
  4. REVATIO [Concomitant]
  5. TRACLEER [Suspect]
     Indication: PULMONARY ARTERIAL HYPERTENSION
     Dosage: 50 MG, BID
     Route: 048

REACTIONS (9)
  - CARDIAC MASSAGE [None]
  - BALLOON ATRIAL SEPTOSTOMY [None]
  - PULMONARY HAEMORRHAGE [None]
  - RIGHT VENTRICULAR FAILURE [None]
  - HAEMOPTYSIS [None]
  - BRADYCARDIA [None]
  - PULMONARY ARTERIAL HYPERTENSION [None]
  - DISEASE PROGRESSION [None]
  - TRICUSPID VALVE INCOMPETENCE [None]
